FAERS Safety Report 10560598 (Version 1)
Quarter: 2014Q4

REPORT INFORMATION
  Report Type: Spontaneous
  Country: AR (occurrence: AR)
  Receive Date: 20141103
  Receipt Date: 20141103
  Transmission Date: 20150529
  Serious: Yes (Hospitalization)
  Sender: FDA-Public Use
  Company Number: AR-PFIZER INC-2014300804

PATIENT
  Age: 71 Year
  Sex: Female

DRUGS (1)
  1. SUTENT [Suspect]
     Active Substance: SUNITINIB MALATE
     Indication: RENAL CANCER
     Dosage: 50 MG, CYCLIC, 28 DAYS AND 14 DAYS REST

REACTIONS (8)
  - Stomatitis [Recovered/Resolved]
  - Disease progression [Not Recovered/Not Resolved]
  - Upper limb fracture [Recovering/Resolving]
  - Blood pressure increased [Recovered/Resolved]
  - Pain [Not Recovered/Not Resolved]
  - Urinary tract infection [Recovering/Resolving]
  - Renal cancer [Not Recovered/Not Resolved]
  - Lower limb fracture [Recovering/Resolving]
